FAERS Safety Report 4934171-5 (Version None)
Quarter: 2006Q1

REPORT INFORMATION
  Report Type: 
  Country: None (occurrence: None)
  Receive Date: 20060303
  Receipt Date: 20060222
  Transmission Date: 20060701
  Serious: Yes (Other)
  Sender: FDA-Public Use
  Company Number: 200610076BCC

PATIENT
  Age: 72 Year
  Sex: Female
  Weight: 68.0396 kg

DRUGS (10)
  1. ALEVE (CAPLET) [Suspect]
     Indication: JOINT INJURY
     Dosage: 440 MG, TOTAL DAILY, ORAL
     Route: 048
     Dates: start: 20010101, end: 20050501
  2. ALEVE (CAPLET) [Suspect]
     Indication: NERVE INJURY
     Dosage: 440 MG, TOTAL DAILY, ORAL
     Route: 048
     Dates: start: 20010101, end: 20050501
  3. ALEVE (CAPLET) [Suspect]
     Indication: JOINT INJURY
     Dosage: 440 MG, TOTAL DAILY, ORAL
     Route: 048
     Dates: start: 20050901, end: 20051201
  4. ALEVE (CAPLET) [Suspect]
     Indication: NERVE INJURY
     Dosage: 440 MG, TOTAL DAILY, ORAL
     Route: 048
     Dates: start: 20050901, end: 20051201
  5. ATENOLOL [Concomitant]
  6. Z-BEC [Concomitant]
  7. TRAVATAN [Concomitant]
  8. ALBUTEROL [Concomitant]
  9. TYLENOL (CAPLET) [Concomitant]
  10. BETA BLOCKERS [Concomitant]

REACTIONS (16)
  - ANOREXIA [None]
  - CALCINOSIS [None]
  - DIARRHOEA [None]
  - DIVERTICULUM INTESTINAL [None]
  - FATIGUE [None]
  - GASTRITIS [None]
  - GASTROINTESTINAL DISORDER [None]
  - LIVER DISORDER [None]
  - MALAISE [None]
  - NAUSEA [None]
  - OESOPHAGEAL SPASM [None]
  - PYREXIA [None]
  - RENAL CYST [None]
  - SPLEEN DISORDER [None]
  - VOMITING [None]
  - WEIGHT DECREASED [None]
